FAERS Safety Report 5959948-9 (Version None)
Quarter: 2008Q4

REPORT INFORMATION
  Report Type: 
  Country: None (occurrence: None)
  Receive Date: 20081119
  Receipt Date: 20081119
  Transmission Date: 20090506
  Serious: Yes (Hospitalization)
  Sender: FDA-Public Use
  Company Number: None

PATIENT
  Age: 47 Year
  Sex: Male

DRUGS (18)
  1. ZOSYN [Suspect]
     Indication: PNEUMONIA
     Dosage: 4.5 GM IV Q 8 HOURS
     Route: 042
     Dates: start: 20080701, end: 20080705
  2. SYNTHROID [Concomitant]
  3. MG [Concomitant]
  4. METOPROLOL TARTRATE [Concomitant]
  5. M.V.I. [Concomitant]
  6. SUCRALFATE [Concomitant]
  7. FERROUS SULFATE TAB [Concomitant]
  8. MMF [Concomitant]
  9. FLUDROCORTISONE ACETATE [Concomitant]
  10. BACTRIM [Concomitant]
  11. ASPIRIN [Concomitant]
  12. DOCUSATE [Concomitant]
  13. OXYCODONE HCL [Concomitant]
  14. CLONAZEPAM [Concomitant]
  15. ALBUTEROL [Concomitant]
  16. TACRO [Concomitant]
  17. RANITIDINE [Concomitant]
  18. PREDNISONE TAB [Concomitant]

REACTIONS (1)
  - DIARRHOEA [None]
